FAERS Safety Report 9333452 (Version 2)
Quarter: 2013Q2

REPORT INFORMATION
  Report Type: Spontaneous
  Country: US (occurrence: None)
  Receive Date: 20130604
  Receipt Date: 20130618
  Transmission Date: 20140414
  Serious: Yes (Hospitalization, Other)
  Sender: FDA-Public Use
  Company Number: AUR-APL-2013-04605

PATIENT
  Age: 48 Year
  Sex: Male

DRUGS (7)
  1. VENLAFAXINE (VENLAFAXINE) [Suspect]
     Dosage: (300 MG, 1 D)
  2. AMFEBUTAMONE [Suspect]
     Indication: ANXIETY
  3. AMFEBUTAMONE [Suspect]
  4. CLONAZEPAM [Suspect]
     Indication: PRODUCT USED FOR UNKNOWN INDICATION
  5. HYDROXYZINE (HYDROXYZINE) [Concomitant]
  6. METOPROLOL TARTRATE (METOPROLOL TARTRATE) (TABLETS) (METOPROLOL TARTRATE) [Concomitant]
  7. BUPROPION (BUPROPION) [Suspect]
     Indication: PRODUCT USED FOR UNKNOWN INDICATION

REACTIONS (5)
  - Incorrect dose administered [None]
  - Hallucinations, mixed [None]
  - Tremor [None]
  - Anxiety [None]
  - Substance-induced psychotic disorder [None]
